FAERS Safety Report 12468765 (Version 1)
Quarter: 2016Q2

REPORT INFORMATION
  Report Type: Spontaneous
  Country: ES (occurrence: ES)
  Receive Date: 20160615
  Receipt Date: 20160615
  Transmission Date: 20160815
  Serious: Yes (Hospitalization)
  Sender: FDA-Public Use
  Company Number: ES-ELI_LILLY_AND_COMPANY-ES201606005040

PATIENT
  Age: 53 Year
  Sex: Male
  Weight: 70 kg

DRUGS (3)
  1. ERBITUX [Suspect]
     Active Substance: CETUXIMAB
     Indication: COLON CANCER METASTATIC
     Dosage: 250 MG/M2, CYCLICAL
     Route: 042
     Dates: start: 201504, end: 20150929
  2. FLUOROURACILO [Suspect]
     Active Substance: FLUOROURACIL
     Indication: COLON CANCER METASTATIC
     Dosage: 2400 MG/M2, CYCLICAL
     Route: 042
     Dates: start: 201504, end: 20150929
  3. IRINOTECAN [Suspect]
     Active Substance: IRINOTECAN
     Indication: COLON CANCER METASTATIC
     Dosage: 180 MG/M2, CYCLICAL
     Route: 042
     Dates: start: 201504, end: 20150929

REACTIONS (1)
  - Enterocolitis [Recovered/Resolved]

NARRATIVE: CASE EVENT DATE: 20150929
